FAERS Safety Report 17467008 (Version 1)
Quarter: 2020Q1

REPORT INFORMATION
  Report Type: Spontaneous
  Country: US (occurrence: US)
  Receive Date: 20200227
  Receipt Date: 20200227
  Transmission Date: 20200409
  Serious: Yes (Life-Threatening, Hospitalization)
  Sender: FDA-Public Use
  Company Number: US-MYLANLABS-2020M1021193

PATIENT
  Age: 65 Year
  Sex: Female

DRUGS (1)
  1. METOPROLOL. [Suspect]
     Active Substance: METOPROLOL
     Indication: ANXIETY
     Dosage: FOR MORE THAN 10 YEARS
     Route: 065

REACTIONS (3)
  - Bradycardia [Recovering/Resolving]
  - Syncope [Unknown]
  - Hypotension [Unknown]
